FAERS Safety Report 17019465 (Version 2)
Quarter: 2019Q4

REPORT INFORMATION
  Report Type: Report from Study
  Country: None (occurrence: US)
  Receive Date: 20191112
  Receipt Date: 20191225
  Transmission Date: 20200122
  Serious: Yes (Hospitalization)
  Sender: FDA-Public Use
  Company Number: US-ABBVIE-19K-163-2944795-00

PATIENT
  Sex: Male

DRUGS (5)
  1. PLAVIX [Suspect]
     Active Substance: CLOPIDOGREL BISULFATE
     Route: 065
  2. HUMIRA [Suspect]
     Active Substance: ADALIMUMAB
     Indication: CROHN^S DISEASE
     Route: 058
     Dates: start: 20190903
  3. ASA [Suspect]
     Active Substance: ASPIRIN
     Route: 065
  4. PLAVIX [Suspect]
     Active Substance: CLOPIDOGREL BISULFATE
     Indication: LIPIDS ABNORMAL
     Route: 065
  5. ASA [Suspect]
     Active Substance: ASPIRIN
     Indication: LIPIDS ABNORMAL
     Route: 065

REACTIONS (7)
  - Diarrhoea [Not Recovered/Not Resolved]
  - Blood glucose decreased [Unknown]
  - Fatigue [Unknown]
  - Blister [Not Recovered/Not Resolved]
  - Haematochezia [Not Recovered/Not Resolved]
  - Drug ineffective [Unknown]
  - Pustule [Unknown]

NARRATIVE: CASE EVENT DATE: 2019
